FAERS Safety Report 8991999 (Version 2)
Quarter: 2014Q1

REPORT INFORMATION
  Report Type: Report from Study
  Country: JP (occurrence: JP)
  Receive Date: 20121231
  Receipt Date: 20140206
  Transmission Date: 20141002
  Serious: Yes (Hospitalization, Other)
  Sender: FDA-Public Use
  Company Number: PHHY2012JP120724

PATIENT
  Age: 40 Year
  Sex: Male

DRUGS (15)
  1. FTY 720 [Suspect]
     Indication: MULTIPLE SCLEROSIS
     Dosage: 0.5 MG, QD
     Route: 048
     Dates: end: 20120817
  2. FTY 720 [Suspect]
     Dosage: 0.5 MG, QD
     Route: 048
     Dates: start: 20121026
  3. AVONEX [Concomitant]
     Dosage: 30 UG, QW
     Route: 030
     Dates: start: 20101217
  4. PREDNISOLONE [Concomitant]
     Dosage: 27.5 MG, UNK
     Route: 048
     Dates: start: 20110607, end: 20110804
  5. PREDNISOLONE [Concomitant]
     Dosage: 50 MG, UNK
     Route: 048
     Dates: start: 20110808, end: 20120927
  6. PREDNISOLONE [Concomitant]
     Dosage: 40 MG, UNK
     Route: 048
     Dates: start: 20121001
  7. OMEPRAL [Concomitant]
     Dosage: 10 MG, UNK
     Route: 048
     Dates: start: 20110607
  8. DOGMATYL [Concomitant]
     Dosage: 50 MG, UNK
     Route: 048
  9. ALFAROL [Concomitant]
     Dosage: 1 UG, UNK
     Route: 048
  10. TEGRETOL [Concomitant]
     Dosage: 200 MG, UNK
     Route: 048
  11. DORAL [Concomitant]
     Dosage: 15 MG, UNK
     Route: 048
  12. SILECE [Concomitant]
     Dosage: 2 MG, UNK
     Route: 048
  13. METHYCOOL [Concomitant]
     Dosage: 1500 UG, UNK
     Route: 048
  14. VOLTAREN [Concomitant]
     Dosage: 25 MG, UNK
     Route: 048
  15. FOSAMAC [Concomitant]
     Dosage: 35 MG, UNK
     Route: 048

REACTIONS (6)
  - Drug-induced liver injury [Not Recovered/Not Resolved]
  - Hepatic function abnormal [Unknown]
  - Alanine aminotransferase increased [Unknown]
  - Gamma-glutamyltransferase increased [Unknown]
  - Multiple sclerosis relapse [Recovering/Resolving]
  - Lymphopenia [Recovered/Resolved]
